FAERS Safety Report 4592826-9 (Version None)
Quarter: 2005Q1

REPORT INFORMATION
  Report Type: 
  Country: None (occurrence: None)
  Receive Date: 20050228
  Receipt Date: 20050214
  Transmission Date: 20050727
  Serious: Yes (Hospitalization)
  Sender: FDA-Public Use
  Company Number: 200511084GDDC

PATIENT
  Age: 52 Year
  Sex: Female

DRUGS (1)
  1. NICODERM [Suspect]
     Indication: SMOKING CESSATION THERAPY
     Route: 062
     Dates: start: 20050122, end: 20050124

REACTIONS (3)
  - CHEST PAIN [None]
  - HYPERTENSION [None]
  - PAIN IN EXTREMITY [None]
